FAERS Safety Report 8296758-4 (Version None)
Quarter: 2012Q2

REPORT INFORMATION
  Report Type: 
  Country: None (occurrence: None)
  Receive Date: 20120418
  Receipt Date: 20120203
  Transmission Date: 20120825
  Serious: No
  Sender: FDA-Public Use
  Company Number: US-ASTRAZENECA-2011SE73739

PATIENT
  Age: 75 Year
  Sex: Female
  Weight: 84.8 kg

DRUGS (9)
  1. LISINOPRIL [Concomitant]
  2. NEXIUM [Suspect]
     Route: 048
  3. SEROQUEL [Suspect]
     Indication: DEPRESSION
     Route: 048
  4. RANITIDINE [Concomitant]
  5. GABAPENTIN [Concomitant]
  6. METHOCARBAMOL [Concomitant]
  7. LIBRIUM [Concomitant]
  8. OMEPRAZOLE [Concomitant]
  9. SEROQUEL [Suspect]
     Indication: SLEEP DISORDER
     Route: 048

REACTIONS (5)
  - PNEUMONIA [None]
  - MALAISE [None]
  - DRUG DOSE OMISSION [None]
  - OROPHARYNGEAL PAIN [None]
  - OFF LABEL USE [None]
